FAERS Safety Report 13289279 (Version 3)
Quarter: 2019Q2

REPORT INFORMATION
  Report Type: Spontaneous
  Country: US (occurrence: US)
  Receive Date: 20170303
  Receipt Date: 20190415
  Transmission Date: 20190711
  Serious: Yes (Other)
  Sender: FDA-Public Use
  Company Number: US-ROCHE-1901408

PATIENT
  Sex: Female

DRUGS (7)
  1. SYMBICORT [Concomitant]
     Active Substance: BUDESONIDE\FORMOTEROL FUMARATE DIHYDRATE
  2. ALBUTEROL. [Concomitant]
     Active Substance: ALBUTEROL
  3. PREDNISONE. [Concomitant]
     Active Substance: PREDNISONE
     Dosage: ONGOING;YES
     Route: 065
  4. PULMICORT TURBUHALER [Concomitant]
     Active Substance: BUDESONIDE
  5. OXYGEN. [Concomitant]
     Active Substance: OXYGEN
     Indication: LUNG DISORDER
     Dosage: ONGOING;YES
     Route: 065
  6. VALIUM [Suspect]
     Active Substance: DIAZEPAM
     Indication: BRONCHOSPASM
     Route: 065
  7. GENADINE [Concomitant]

REACTIONS (5)
  - Respiratory arrest [Unknown]
  - Product use complaint [Unknown]
  - Weight increased [Unknown]
  - Upper respiratory tract infection [Not Recovered/Not Resolved]
  - Weight decreased [Unknown]
